FAERS Safety Report 22313500 (Version 10)
Quarter: 2023Q4

REPORT INFORMATION
  Report Type: Report from Study
  Country: DK (occurrence: DK)
  Receive Date: 20230512
  Receipt Date: 20231128
  Transmission Date: 20240109
  Serious: Yes (Life-Threatening, Hospitalization)
  Sender: FDA-Public Use
  Company Number: DK-002147023-NVSC2023DK105700

PATIENT
  Age: 55 Year
  Sex: Female
  Weight: 55.55 kg

DRUGS (22)
  1. ALPELISIB [Suspect]
     Active Substance: ALPELISIB
     Indication: Breast cancer
     Dosage: 300 MG, QD
     Route: 048
     Dates: start: 20230427, end: 20230507
  2. PLACEBO [Suspect]
     Active Substance: UNSPECIFIED INGREDIENT
     Indication: Breast cancer
     Dosage: UNK
     Route: 048
     Dates: start: 20230302
  3. FULVESTRANT [Suspect]
     Active Substance: FULVESTRANT
     Indication: Breast cancer
     Dosage: 500 MG, QMO
     Route: 030
     Dates: start: 20230302
  4. PREDNISOLONE [Suspect]
     Active Substance: PREDNISOLONE
     Indication: Decreased appetite
     Dosage: UNK
     Route: 065
     Dates: start: 20230427, end: 20230930
  5. MORPHINE [Concomitant]
     Active Substance: MORPHINE
     Indication: Back pain
     Dosage: PRN
     Route: 065
     Dates: start: 20210909
  6. ZOLEDRONSYRE SUN [Concomitant]
     Indication: Osteoporosis prophylaxis
     Dosage: UNK
     Route: 065
     Dates: start: 20210909
  7. ZOLEDRONSYRE SUN [Concomitant]
     Indication: Prophylaxis
  8. ONDANSETRON [Concomitant]
     Active Substance: ONDANSETRON
     Indication: Nausea
     Dosage: UNK
     Route: 065
     Dates: start: 20211008
  9. POLYETHYLENE GLYCOL 3350 [Concomitant]
     Active Substance: POLYETHYLENE GLYCOL 3350
     Indication: Constipation
     Dosage: UNK
     Route: 065
     Dates: start: 20220301
  10. CETIRIZINE HYDROCHLORIDE [Concomitant]
     Active Substance: CETIRIZINE HYDROCHLORIDE
     Indication: Prophylaxis
     Dosage: UNK
     Route: 065
     Dates: start: 20230302, end: 20230525
  11. LOPERAMIDE [Concomitant]
     Active Substance: LOPERAMIDE
     Indication: Prophylaxis against diarrhoea
     Dosage: UNK
     Route: 065
     Dates: start: 20230302, end: 20230525
  12. LOPERAMIDE [Concomitant]
     Active Substance: LOPERAMIDE
     Indication: Diarrhoea
  13. ACETAMINOPHEN [Concomitant]
     Active Substance: ACETAMINOPHEN
     Indication: Influenza like illness
     Dosage: UNK
     Route: 065
     Dates: start: 20230308
  14. DIPHENHYDRAMINE [Concomitant]
     Active Substance: DIPHENHYDRAMINE
     Indication: Influenza like illness
     Dosage: UNK
     Route: 065
     Dates: start: 20230310, end: 20230515
  15. PANTOPRAZOLE SODIUM [Concomitant]
     Active Substance: PANTOPRAZOLE SODIUM
     Indication: Prophylaxis against gastrointestinal ulcer
     Dosage: UNK
     Route: 065
     Dates: start: 20230427
  16. PIPERACILLIN SODIUM\TAZOBACTAM SODIUM [Concomitant]
     Active Substance: PIPERACILLIN SODIUM\TAZOBACTAM SODIUM
     Indication: Haemophilus infection
     Dosage: UNK
     Route: 065
     Dates: start: 20230508, end: 20230523
  17. FAT [Concomitant]
     Indication: Rash
     Dosage: UNK
     Route: 065
     Dates: start: 20230509
  18. POTASSIUM CHLORIDE [Concomitant]
     Active Substance: POTASSIUM CHLORIDE
     Indication: Hyperkalaemia
     Dosage: UNK
     Route: 065
     Dates: start: 20230510, end: 20230510
  19. VITAMIN B1 [Concomitant]
     Active Substance: THIAMINE HYDROCHLORIDE
     Indication: Vitamin supplementation
     Dosage: UNK
     Route: 065
     Dates: start: 20230511
  20. B-COMBIN [Concomitant]
     Indication: Vitamin supplementation
     Dosage: UNK
     Route: 065
     Dates: start: 20230511
  21. MABLET [Concomitant]
     Indication: Hypomagnesaemia
     Dosage: UNK
     Route: 065
     Dates: start: 20230514
  22. FASLODEX [Concomitant]
     Active Substance: FULVESTRANT
     Indication: Breast cancer
     Dosage: UNK
     Route: 065
     Dates: start: 20230525, end: 20230623

REACTIONS (4)
  - Hypophosphataemia [Recovering/Resolving]
  - Diabetes mellitus [Not Recovered/Not Resolved]
  - Hyperglycaemia [Recovered/Resolved with Sequelae]
  - Pneumonia [Not Recovered/Not Resolved]

NARRATIVE: CASE EVENT DATE: 20230502
